FAERS Safety Report 25539320 (Version 2)
Quarter: 2025Q3

REPORT INFORMATION
  Report Type: Report from Study
  Country: US (occurrence: US)
  Receive Date: 20250710
  Receipt Date: 20250803
  Transmission Date: 20251020
  Serious: Yes (Other)
  Sender: ALEXION PHARMACEUTICALS
  Company Number: US-AstraZeneca-CH-00905499A

PATIENT
  Sex: Female

DRUGS (1)
  1. STRENSIQ [Suspect]
     Active Substance: ASFOTASE ALFA
     Indication: Hypophosphatasia
     Route: 065

REACTIONS (11)
  - Cardiac failure [Unknown]
  - Calcinosis [Unknown]
  - Pain [Unknown]
  - Dyspnoea [Unknown]
  - Fall [Unknown]
  - Periarthritis [Unknown]
  - Emphysema [Unknown]
  - Muscle fatigue [Unknown]
  - Visual impairment [Unknown]
  - Gait disturbance [Unknown]
  - Knee deformity [Unknown]
